FAERS Safety Report 4578381-8 (Version None)
Quarter: 2005Q1

REPORT INFORMATION
  Report Type: 
  Country: None (occurrence: None)
  Receive Date: 20050202
  Receipt Date: 20050202
  Transmission Date: 20050727
  Serious: Yes (Hospitalization)
  Sender: FDA-Public Use
  Company Number: None

PATIENT
  Age: 78 Year
  Sex: Male

DRUGS (4)
  1. BEXTRA [Suspect]
     Indication: PAIN IN EXTREMITY
     Dosage: 20 MG PO Q DAILY
     Route: 048
  2. ASPIRIN [Suspect]
     Indication: CARDIAC DISORDER
     Dosage: 81 MG PO DAILY
     Route: 048
  3. ZANTAC [Concomitant]
  4. LANSOPRAZOLE [Concomitant]

REACTIONS (2)
  - CHOLELITHIASIS [None]
  - DUODENAL ULCER PERFORATION [None]
